FAERS Safety Report 4718694-X (Version None)
Quarter: 2005Q3

REPORT INFORMATION
  Report Type: 
  Country: None (occurrence: None)
  Receive Date: 20050719
  Receipt Date: 20050712
  Transmission Date: 20060218
  Serious: Yes (Life-Threatening, Hospitalization)
  Sender: FDA-Public Use
  Company Number: 200418321BWH

PATIENT
  Age: 48 Year
  Sex: Male

DRUGS (2)
  1. LEVITRA (VARDENAL HYDROCHLORIDE) [Suspect]
     Indication: ERECTILE DYSFUNCTION
     Dosage: SEE IMAGE
     Route: 048
  2. COCAINE [Concomitant]

REACTIONS (16)
  - ARRHYTHMIA [None]
  - ATRIOVENTRICULAR BLOCK [None]
  - BLOOD POTASSIUM DECREASED [None]
  - BLOOD PRESSURE SYSTOLIC INCREASED [None]
  - BRADYCARDIA [None]
  - CHEST PAIN [None]
  - DIZZINESS [None]
  - DRUG ABUSER [None]
  - ELECTROCARDIOGRAM T WAVE INVERSION [None]
  - HAEMATOCRIT DECREASED [None]
  - HAEMOGLOBIN DECREASED [None]
  - PALPITATIONS [None]
  - RED BLOOD CELL COUNT DECREASED [None]
  - RESPIRATORY RATE INCREASED [None]
  - SYNCOPE [None]
  - VENTRICULAR HYPERTROPHY [None]
